FAERS Safety Report 7278520-4 (Version None)
Quarter: 2011Q1

REPORT INFORMATION
  Report Type: 
  Country: None (occurrence: None)
  Receive Date: 20110207
  Receipt Date: 20110114
  Transmission Date: 20110831
  Serious: Yes (Other)
  Sender: FDA-Public Use
  Company Number: US-BAYER-2011-005362

PATIENT
  Sex: Male
  Weight: 111.11 kg

DRUGS (3)
  1. ANTIBIOTICS [Concomitant]
  2. ALEVE (CAPLET) [Suspect]
     Dosage: 220 MG, ONCE
     Route: 048
     Dates: start: 20090101
  3. SYMBICORT [Concomitant]

REACTIONS (2)
  - HYPERSENSITIVITY [None]
  - DYSPNOEA [None]
